FAERS Safety Report 14611242 (Version 1)
Quarter: 2018Q1

REPORT INFORMATION
  Report Type: Spontaneous
  Country: US (occurrence: US)
  Receive Date: 20180308
  Receipt Date: 20180308
  Transmission Date: 20180509
  Serious: Yes (Life-Threatening, Hospitalization, Other)
  Sender: FDA-Public Use
  Company Number: US-IPCA LABORATORIES LIMITED-IPC-2018-US-000380

PATIENT
  Age: 73 Year
  Sex: Female

DRUGS (2)
  1. HYDROCHLOROTHIAZIDE. [Suspect]
     Active Substance: HYDROCHLOROTHIAZIDE
     Indication: SWELLING
     Dosage: UNK
     Route: 065
  2. TRIAMTERENE. [Suspect]
     Active Substance: TRIAMTERENE
     Indication: SWELLING
     Dosage: UNK
     Route: 065

REACTIONS (4)
  - Pulmonary arterial hypertension [Unknown]
  - Pulmonary oedema [Unknown]
  - Acute respiratory distress syndrome [Unknown]
  - Septic shock [Unknown]
